FAERS Safety Report 6627675-0 (Version None)
Quarter: 2010Q1

REPORT INFORMATION
  Report Type: 
  Country: None (occurrence: None)
  Receive Date: 20100311
  Receipt Date: 20100226
  Transmission Date: 20100710
  Serious: Yes (Hospitalization, Other)
  Sender: FDA-Public Use
  Company Number: PHEH2006US06792

PATIENT
  Sex: Female
  Weight: 65.306 kg

DRUGS (50)
  1. AREDIA [Suspect]
     Indication: METASTASES TO BONE
     Dosage: 90MG QMON IN 500CC OVER 1.5 TO 2 HOURS
     Dates: start: 20001003, end: 20020219
  2. ZOMETA [Suspect]
     Indication: METASTASES TO BONE
     Dosage: 4MG QMONTH
     Dates: start: 20020319, end: 20031201
  3. TAMOXIFEN CITRATE [Concomitant]
     Indication: BREAST CANCER
     Dosage: 10 MG, BID
     Route: 048
     Dates: start: 19981031, end: 20030501
  4. ATIVAN [Concomitant]
     Indication: ANXIETY
     Dosage: 1 MG BID PRN
     Route: 048
     Dates: start: 20000928
  5. VIOXX [Concomitant]
     Indication: BONE PAIN
     Dosage: 25 MG, QD
     Dates: start: 20010220, end: 20040908
  6. FOSAMAX [Concomitant]
     Dosage: 10 MG, QW
     Dates: start: 20020122, end: 20040219
  7. ARIMIDEX [Concomitant]
     Dosage: 1 MG, QD
     Dates: start: 20031001
  8. CALCIUM [Concomitant]
     Dosage: 400 MG, QID
     Dates: start: 20000929, end: 20030121
  9. GLUCOSAMINE W/CHONDROITIN [Concomitant]
     Dosage: UNK, QD
     Dates: start: 20020122, end: 20030121
  10. NEXIUM [Concomitant]
     Indication: GASTROOESOPHAGEAL REFLUX DISEASE
     Dosage: QD PRN
     Dates: start: 20021029, end: 20040908
  11. REGLAN [Concomitant]
     Indication: GASTROOESOPHAGEAL REFLUX DISEASE
     Dosage: 10MG WITH MEALS
     Route: 048
  12. DARVOCET-N 100 [Concomitant]
     Dosage: UNK, PRN
  13. PHENERGAN ^AVENTIS PHARMA^ [Concomitant]
  14. AROMASIN [Concomitant]
  15. ATARAX [Concomitant]
  16. BACTRIM [Concomitant]
  17. BETAMETHASONE VALERATE [Concomitant]
  18. CELEBREX [Concomitant]
  19. CYPROHEPTADINE HYDROCHLORIDE [Concomitant]
  20. ACETAMINOPHEN AND HYDROCODONE BITARTRATE [Concomitant]
  21. PERCOCET [Concomitant]
  22. PROCHLORPERAZINE [Concomitant]
  23. PROMETHAZINE HCL [Concomitant]
  24. VESICARE [Concomitant]
  25. ZYRTEC [Concomitant]
  26. LOVENOX [Concomitant]
  27. CALCITONIN [Concomitant]
  28. TORADOL [Concomitant]
  29. METOCLOPRAMIDE [Concomitant]
  30. LORAZEPAM [Concomitant]
  31. NOLVADEX [Concomitant]
  32. FAMVIR                                  /NET/ [Concomitant]
  33. ELIDEL [Concomitant]
  34. MOBIC [Concomitant]
  35. PENICILLIN VK [Concomitant]
  36. CHLORHEXIDINE GLUCONATE [Concomitant]
  37. CYCLOBENZAPRINE [Concomitant]
  38. HYDROXYZINE [Concomitant]
  39. SPORANOX [Concomitant]
  40. LIDOCAINE HCL VISCOUS [Concomitant]
  41. PAXIL [Concomitant]
  42. ALPRAZOLAM [Concomitant]
  43. PREDNISONE [Concomitant]
  44. OXYCODONE [Concomitant]
  45. METHADONE HYDROCHLORIDE [Concomitant]
  46. AVELOX [Concomitant]
  47. GEMCITABINE [Concomitant]
  48. VITAMIN D [Concomitant]
  49. CODEINE SULFATE [Concomitant]
  50. DEMEROL [Concomitant]

REACTIONS (53)
  - ABSCESS JAW [None]
  - ACTINOMYCOSIS [None]
  - ANHEDONIA [None]
  - ANXIETY [None]
  - ASPIRATION [None]
  - BACK PAIN [None]
  - BONE DISORDER [None]
  - BONE PAIN [None]
  - DEBRIDEMENT [None]
  - DEFORMITY [None]
  - DENTAL CARIES [None]
  - DENTAL OPERATION [None]
  - DERMATITIS [None]
  - DYSGEUSIA [None]
  - DYSPHAGIA [None]
  - EMOTIONAL DISTRESS [None]
  - FACE OEDEMA [None]
  - FISTULA [None]
  - FISTULA REPAIR [None]
  - GINGIVAL SWELLING [None]
  - HYPERBARIC OXYGEN THERAPY [None]
  - HYPERPLASIA [None]
  - HYPOAESTHESIA [None]
  - IMPAIRED HEALING [None]
  - INFLAMMATION [None]
  - JAW OPERATION [None]
  - MYOFASCIAL PAIN SYNDROME [None]
  - ORAL CAVITY FISTULA [None]
  - ORAL DISCOMFORT [None]
  - ORAL SURGERY [None]
  - OSTEOARTHRITIS [None]
  - OSTEOMYELITIS [None]
  - OSTEONECROSIS [None]
  - PAIN [None]
  - PAIN IN EXTREMITY [None]
  - PAIN IN JAW [None]
  - PAPILLOMA [None]
  - PLASTIC SURGERY TO THE FACE [None]
  - PRIMARY SEQUESTRUM [None]
  - PROCEDURAL PAIN [None]
  - PURULENT DISCHARGE [None]
  - RASH [None]
  - SPINAL OSTEOARTHRITIS [None]
  - TOOTH DEPOSIT [None]
  - TOOTH DISORDER [None]
  - TOOTH EXTRACTION [None]
  - TOOTH FRACTURE [None]
  - TOOTH INFECTION [None]
  - TOOTH LOSS [None]
  - TOOTHACHE [None]
  - URTICARIA [None]
  - WEIGHT DECREASED [None]
  - WOUND DRAINAGE [None]
